FAERS Safety Report 25638294 (Version 1)
Quarter: 2025Q3

REPORT INFORMATION
  Report Type: Spontaneous
  Country: US (occurrence: US)
  Receive Date: 20250804
  Receipt Date: 20250804
  Transmission Date: 20251021
  Serious: Yes (Hospitalization)
  Sender: DAIICHI
  Company Number: US-DAIICHI SANKYO, INC.-DS-2025-155254-USAA

PATIENT
  Sex: Male

DRUGS (1)
  1. VANFLYTA [Suspect]
     Active Substance: QUIZARTINIB DIHYDROCHLORIDE
     Indication: Acute myeloid leukaemia
     Dosage: 35.4 MG, QD (FOR 14 DAYS ON THEN 14 DAYS OFF)
     Route: 048

REACTIONS (1)
  - Hospitalisation [Not Recovered/Not Resolved]
